FAERS Safety Report 13057371 (Version 2)
Quarter: 2017Q1

REPORT INFORMATION
  Report Type: Spontaneous
  Country: US (occurrence: US)
  Receive Date: 20161223
  Receipt Date: 20170110
  Transmission Date: 20170428
  Serious: No
  Sender: FDA-Public Use
  Company Number: US-ASTRAZENECA-2016SE73014

PATIENT
  Age: 784 Month
  Sex: Male
  Weight: 99.8 kg

DRUGS (4)
  1. DOXYCYCLINE. [Concomitant]
     Active Substance: DOXYCYCLINE
     Indication: ROSACEA
  2. ZURAMPIC [Suspect]
     Active Substance: LESINURAD
     Indication: GOUT
     Route: 048
     Dates: start: 2013
  3. ULORIC [Concomitant]
     Active Substance: FEBUXOSTAT
     Indication: GOUT
     Dates: start: 2013
  4. COLCHICINE. [Concomitant]
     Active Substance: COLCHICINE
     Indication: GOUT

REACTIONS (1)
  - Pain in extremity [Not Recovered/Not Resolved]

NARRATIVE: CASE EVENT DATE: 201606
